FAERS Safety Report 9116372 (Version 5)
Quarter: 2014Q2

REPORT INFORMATION
  Report Type: Report from Study
  Country: US (occurrence: US)
  Receive Date: 20130225
  Receipt Date: 20140408
  Transmission Date: 20141212
  Serious: Yes (Hospitalization)
  Sender: FDA-Public Use
  Company Number: US-ACTELION-A-NJ2013-79798

PATIENT
  Age: 51 Year
  Sex: Male

DRUGS (3)
  1. VENTAVIS [Suspect]
     Indication: PULMONARY ARTERIAL HYPERTENSION
     Dosage: 5 MCG, 4-6X/DAY
     Route: 055
     Dates: start: 20090728
  2. ADCIRCA [Concomitant]
  3. LETAIRIS [Concomitant]

REACTIONS (6)
  - Pain in extremity [Unknown]
  - Peripheral swelling [Unknown]
  - Cellulitis [Unknown]
  - Sepsis [Unknown]
  - Pyrexia [Unknown]
  - Swelling [Unknown]
